FAERS Safety Report 4368570-X (Version None)
Quarter: 2004Q2

REPORT INFORMATION
  Report Type: 
  Country: None (occurrence: None)
  Receive Date: 20040602
  Receipt Date: 20040512
  Transmission Date: 20050107
  Serious: Yes (Death, Hospitalization)
  Sender: FDA-Public Use
  Company Number: BE-JNJFOC-20040403804

PATIENT
  Sex: Male
  Weight: 76 kg

DRUGS (3)
  1. DURAGESIC [Suspect]
     Indication: NECK PAIN
     Dosage: 100 UG/HR, TRANSDERMAL
     Route: 062
  2. LIORESAL [Suspect]
     Indication: MUSCLE CRAMP
     Dosage: 10 MG, 3 IN 1 DAY, ORAL
     Route: 048
  3. VOLTAREN [Concomitant]

REACTIONS (8)
  - DRUG INTERACTION [None]
  - ENCEPHALITIS [None]
  - INSOMNIA [None]
  - MENINGITIS [None]
  - MYALGIA [None]
  - REFUSAL OF TREATMENT BY PATIENT [None]
  - REFUSAL OF TREATMENT BY RELATIVE [None]
  - RESPIRATORY DEPRESSION [None]
